FAERS Safety Report 13670401 (Version 1)
Quarter: 2017Q2

REPORT INFORMATION
  Report Type: Spontaneous
  Country: AU (occurrence: AU)
  Receive Date: 20170620
  Receipt Date: 20170620
  Transmission Date: 20170830
  Serious: Yes (Death)
  Sender: FDA-Public Use
  Company Number: AU-INSYS THERAPEUTICS, INC-INS201706-000375

PATIENT
  Age: 37 Year
  Sex: Female

DRUGS (6)
  1. HEROIN [Suspect]
     Active Substance: DIAMORPHINE
  2. METHADONE [Suspect]
     Active Substance: METHADONE HYDROCHLORIDE
  3. DIAZEPAM. [Suspect]
     Active Substance: DIAZEPAM
  4. OXAZEPAM. [Suspect]
     Active Substance: OXAZEPAM
  5. NORDIAZEPAM [Suspect]
     Active Substance: NORDAZEPAM
  6. FENTANYL. [Suspect]
     Active Substance: FENTANYL
     Indication: PRODUCT USED FOR UNKNOWN INDICATION

REACTIONS (2)
  - Overdose [Fatal]
  - Toxicity to various agents [Fatal]

NARRATIVE: CASE EVENT DATE: 201509
